FAERS Safety Report 23849984 (Version 1)
Quarter: 2024Q2

REPORT INFORMATION
  Report Type: Spontaneous
  Country: US (occurrence: None)
  Receive Date: 20240512
  Receipt Date: 20240512
  Transmission Date: 20240716
  Serious: No
  Sender: FDA-Public Use
  Company Number: None

PATIENT
  Age: 79 Year
  Sex: Female
  Weight: 67.05 kg

DRUGS (1)
  1. TYRVAYA [Suspect]
     Active Substance: VARENICLINE TARTRATE
     Indication: Dry eye
     Dosage: FREQUENCY : TWICE A DAY;?OTHER ROUTE : IN THE NOSE;?
     Route: 050

REACTIONS (2)
  - Sneezing [None]
  - Rhinorrhoea [None]

NARRATIVE: CASE EVENT DATE: 20240512
